FAERS Safety Report 8792939 (Version 1)
Quarter: 2012Q4

REPORT INFORMATION
  Report Type: 
  Country: FR (occurrence: FR)
  Receive Date: 20120918
  Receipt Date: 20120918
  Transmission Date: 20130627
  Serious: Yes (Other)
  Sender: FDA-Public Use
  Company Number: FR-ACTELION-A-CH2012-71391

PATIENT
  Age: 39 Year
  Sex: Male

DRUGS (9)
  1. TRACLEER [Suspect]
     Indication: PULMONARY ARTERIAL HYPERTENSION
     Dosage: 125 mg, bid
     Route: 048
     Dates: end: 20120604
  2. TRACLEER [Suspect]
     Dosage: UNK
     Route: 048
     Dates: start: 2007
  3. VENTAVIS [Suspect]
     Indication: PULMONARY ARTERIAL HYPERTENSION
     Dosage: 5 ?g, q4hrs
     Route: 055
  4. REVATIO [Suspect]
     Dosage: 40 mg, tid
     Route: 048
     Dates: start: 201111
  5. REVATIO [Suspect]
     Dosage: 20 mg, tid
     Route: 048
  6. SERETIDE [Concomitant]
  7. OMEPRAZOLE [Concomitant]
  8. LASILIX [Concomitant]
  9. PREVISCAN [Concomitant]

REACTIONS (4)
  - Hepatocellular injury [Recovered/Resolved]
  - Aspartate aminotransferase increased [Recovered/Resolved]
  - Alanine aminotransferase increased [Recovered/Resolved]
  - Drug interaction [Recovered/Resolved]
